FAERS Safety Report 19737848 (Version 2)
Quarter: 2021Q4

REPORT INFORMATION
  Report Type: Spontaneous
  Country: US (occurrence: US)
  Receive Date: 20210823
  Receipt Date: 20211001
  Transmission Date: 20220303
  Serious: Yes (Other)
  Sender: FDA-Public Use
  Company Number: US-PFIZER INC-202101023760

PATIENT
  Age: 70 Year

DRUGS (2)
  1. PROPOFOL [Suspect]
     Active Substance: PROPOFOL
     Indication: Anaesthesia
     Dosage: 130 (UNIT UNSPECIFIED; 50 ML VIAL, 10 MG/CC)
  2. PROPOFOL [Suspect]
     Active Substance: PROPOFOL
     Dosage: UNK (20 ML VIALS)

REACTIONS (1)
  - Drug ineffective [Unknown]

NARRATIVE: CASE EVENT DATE: 20210801
